FAERS Safety Report 20565818 (Version 5)
Quarter: 2022Q2

REPORT INFORMATION
  Report Type: Spontaneous
  Country: US (occurrence: US)
  Receive Date: 20220308
  Receipt Date: 20220602
  Transmission Date: 20220720
  Serious: Yes (Hospitalization, Other)
  Sender: FDA-Public Use
  Company Number: US-UNITED THERAPEUTICS-UNT-2022-005019

PATIENT
  Age: 69 Year
  Sex: Male
  Weight: 72.109 kg

DRUGS (5)
  1. TYVASO [Suspect]
     Active Substance: TREPROSTINIL
     Indication: Pulmonary arterial hypertension
     Dosage: UNK
     Dates: start: 20200727
  2. TYVASO [Suspect]
     Active Substance: TREPROSTINIL
     Dosage: 72-108 ?G, QID
  3. TYVASO [Suspect]
     Active Substance: TREPROSTINIL
     Dosage: UNK
  4. SILDENAFIL CITRATE [Concomitant]
     Active Substance: SILDENAFIL CITRATE
     Indication: Product used for unknown indication
     Dosage: UNK
     Route: 065
  5. AMLODIPINE [Concomitant]
     Active Substance: AMLODIPINE BESYLATE
     Indication: Product used for unknown indication
     Dosage: UNK
     Route: 065

REACTIONS (7)
  - Cardiac failure [Unknown]
  - Blood sodium decreased [Unknown]
  - Blood potassium decreased [Unknown]
  - Device physical property issue [Unknown]
  - Device electrical finding [Unknown]
  - Device power source issue [Unknown]
  - Off label use [Unknown]

NARRATIVE: CASE EVENT DATE: 20220302
